FAERS Safety Report 25931033 (Version 1)
Quarter: 2025Q4

REPORT INFORMATION
  Report Type: Report from Study
  Country: US (occurrence: US)
  Receive Date: 20251016
  Receipt Date: 20251016
  Transmission Date: 20260117
  Serious: Yes (Hospitalization)
  Sender: ALNYLAM PHARMACEUTICALS
  Company Number: US-ALNYLAM PHARMACEUTICALS, INC.-ALN-2025-006370

PATIENT

DRUGS (2)
  1. GIVLAARI [Suspect]
     Active Substance: GIVOSIRAN SODIUM
     Indication: Porphyria acute
     Dosage: UNK, MONTHLY
     Route: 065
  2. HEMIN [Concomitant]
     Active Substance: HEMIN
     Indication: Product used for unknown indication
     Dosage: UNK (PLAN)
     Route: 065

REACTIONS (2)
  - Porphyria acute [Unknown]
  - Intentional dose omission [Unknown]
